FAERS Safety Report 13472472 (Version 1)
Quarter: 2017Q2

REPORT INFORMATION
  Report Type: Spontaneous
  Country: US (occurrence: US)
  Receive Date: 20170422
  Receipt Date: 20170422
  Transmission Date: 20170830
  Serious: Yes (Life-Threatening, Other)
  Sender: FDA-Public Use
  Company Number: None

PATIENT
  Age: 23 Year
  Sex: Female
  Weight: 67.5 kg

DRUGS (3)
  1. DEXTROAMPHET SACCHARAT, AMPHET ASPARTATE, DEXTROAMPHET SULFATE AND AMPHET SULFAT [Suspect]
     Active Substance: AMPHETAMINE ASPARTATE\AMPHETAMINE SULFATE\DEXTROAMPHETAMINE SACCHARATE\DEXTROAMPHETAMINE SULFATE
     Indication: ATTENTION DEFICIT/HYPERACTIVITY DISORDER
     Dosage: ?          QUANTITY:90 TABLET(S);?
     Route: 048
     Dates: start: 20170227, end: 20170422
  2. MELATONIN [Concomitant]
     Active Substance: MELATONIN
  3. DASETTA 7/7/7 [Concomitant]
     Active Substance: ETHINYL ESTRADIOL\NORETHINDRONE

REACTIONS (10)
  - Fatigue [None]
  - Influenza like illness [None]
  - Metabolic acidosis [None]
  - Syncope [None]
  - Rash macular [None]
  - Hypersensitivity [None]
  - Lymphadenopathy [None]
  - Butterfly rash [None]
  - Diarrhoea [None]
  - Muscle spasms [None]

NARRATIVE: CASE EVENT DATE: 20170413
